FAERS Safety Report 7429604-9 (Version None)
Quarter: 2011Q2

REPORT INFORMATION
  Report Type: 
  Country: None (occurrence: None)
  Receive Date: 20110421
  Receipt Date: 20110411
  Transmission Date: 20111010
  Serious: Yes (Hospitalization, Other)
  Sender: FDA-Public Use
  Company Number: B0708468A

PATIENT
  Sex: Male
  Weight: 75 kg

DRUGS (6)
  1. ASPEGIC 325 [Suspect]
     Dosage: 1G PER DAY
     Route: 048
     Dates: end: 20110130
  2. TED STOCKINGS [Concomitant]
     Dates: start: 20110118
  3. PREVISCAN [Suspect]
     Indication: DEEP VEIN THROMBOSIS
     Dosage: 20MG PER DAY
     Route: 048
     Dates: start: 20110127, end: 20110130
  4. DILTIAZEM HCL [Concomitant]
     Dosage: 60MG PER DAY
     Route: 048
  5. ELISOR [Concomitant]
     Route: 048
  6. ARIXTRA [Suspect]
     Indication: DEEP VEIN THROMBOSIS
     Dosage: 7.5MG PER DAY
     Route: 058
     Dates: start: 20110118, end: 20110130

REACTIONS (5)
  - CEREBRAL HAEMORRHAGE [None]
  - HEMIPLEGIA [None]
  - INCORRECT DRUG ADMINISTRATION DURATION [None]
  - CEREBRAL HAEMATOMA [None]
  - APHASIA [None]
